FAERS Safety Report 22346445 (Version 1)
Quarter: 2023Q2

REPORT INFORMATION
  Report Type: Spontaneous
  Country: US (occurrence: US)
  Receive Date: 20230519
  Receipt Date: 20230519
  Transmission Date: 20230721
  Serious: Yes (Other)
  Sender: FDA-Public Use
  Company Number: US-ORGANON-O2305USA001880

PATIENT
  Age: 51 Year
  Sex: Female

DRUGS (1)
  1. MAXALT [Suspect]
     Active Substance: RIZATRIPTAN BENZOATE
     Indication: Migraine
     Dosage: 10MG TABLET PRN FOR MIGRAINES AND TAKE ANOTHER TABLET 2 HOURS LATER IF NOT BETTER, ODT:: NDA 20-865
     Route: 048

REACTIONS (3)
  - Brain injury [Not Recovered/Not Resolved]
  - Brain fog [Not Recovered/Not Resolved]
  - Drug ineffective [Unknown]

NARRATIVE: CASE EVENT DATE: 20230514
